FAERS Safety Report 8258678-0 (Version None)
Quarter: 2012Q2

REPORT INFORMATION
  Report Type: 
  Country: None (occurrence: None)
  Receive Date: 20120404
  Receipt Date: 20120404
  Transmission Date: 20120825
  Serious: Yes (Other)
  Sender: FDA-Public Use
  Company Number: None

PATIENT
  Sex: Female

DRUGS (8)
  1. FENTANYL [Suspect]
     Indication: PAIN
     Dosage: EVERY 48 HOURS
     Dates: start: 20050101, end: 20120323
  2. HYDROCODONE BITARTRATE [Concomitant]
  3. ZOLOFT [Concomitant]
  4. XANAX [Concomitant]
  5. STOOL SOFTNER [Concomitant]
  6. PREMPRO [Concomitant]
  7. ANTIHISTAMINE [Concomitant]
  8. VALIUM [Concomitant]

REACTIONS (4)
  - HOT FLUSH [None]
  - DYSPNOEA [None]
  - DETOXIFICATION [None]
  - MENOPAUSE [None]
